FAERS Safety Report 9136243 (Version 1)
Quarter: 2013Q1

REPORT INFORMATION
  Report Type: Spontaneous
  Country: JP (occurrence: JP)
  Receive Date: 20130304
  Receipt Date: 20130304
  Transmission Date: 20140127
  Serious: Yes (Hospitalization)
  Sender: FDA-Public Use
  Company Number: JP-GLAXOSMITHKLINE-B0869499A

PATIENT
  Age: 76 Year
  Sex: Male

DRUGS (3)
  1. LAMICTAL [Suspect]
     Indication: BIPOLAR DISORDER
     Route: 048
  2. SODIUM VALPROATE [Concomitant]
     Route: 048
  3. UNKNOWN DRUG [Concomitant]
     Indication: INSOMNIA
     Route: 065

REACTIONS (6)
  - Oral mucosa erosion [Recovered/Resolved]
  - Rash generalised [Recovered/Resolved]
  - Oral pain [Unknown]
  - Hypophagia [Unknown]
  - Eosinophil count increased [Unknown]
  - Pyrexia [Recovered/Resolved]
